FAERS Safety Report 4307465-4 (Version None)
Quarter: 2004Q1

REPORT INFORMATION
  Report Type: 
  Country: None (occurrence: None)
  Receive Date: 20040226
  Receipt Date: 20040223
  Transmission Date: 20041129
  Serious: Yes (Hospitalization)
  Sender: FDA-Public Use
  Company Number: CH-JNJFOC-20040204754

PATIENT
  Age: 63 Year
  Sex: Female
  Weight: 85 kg

DRUGS (3)
  1. REMICADE [Suspect]
     Indication: DERMATOMYOSITIS
     Dosage: 400 MG INTRAVENOUS
     Route: 042
     Dates: start: 20031230, end: 20040108
  2. PREDNISONE [Suspect]
     Indication: DERMATOMYOSITIS
     Dosage: 400 MG, INTRAVENOUS
     Route: 042
     Dates: start: 20031103
  3. METHOTREXATE [Concomitant]
     Indication: DERMATOMYOSITIS
     Dosage: 25 MG, 1 I N1 WEEK
     Dates: start: 20031221, end: 20031228

REACTIONS (3)
  - DRUG INTERACTION [None]
  - PNEUMOCYSTIS CARINII PNEUMONIA [None]
  - RESPIRATORY DISORDER [None]
